FAERS Safety Report 18113141 (Version 1)
Quarter: 2020Q3

REPORT INFORMATION
  Report Type: Spontaneous
  Country: NL (occurrence: NL)
  Receive Date: 20200805
  Receipt Date: 20200805
  Transmission Date: 20201103
  Serious: Yes (Hospitalization, Other)
  Sender: FDA-Public Use
  Company Number: NL-SUN PHARMACEUTICAL INDUSTRIES LTD-2019R1-214428

PATIENT
  Age: 50 Year
  Sex: Male

DRUGS (2)
  1. CLOZAPINE. [Suspect]
     Active Substance: CLOZAPINE
     Indication: INTELLECTUAL DISABILITY
     Dosage: 300 MILLIGRAM, DAILY
     Route: 065
  2. CLOZAPINE. [Suspect]
     Active Substance: CLOZAPINE
     Indication: SCHIZOPHRENIA

REACTIONS (10)
  - Disorientation [Unknown]
  - Blood creatine phosphokinase increased [Unknown]
  - Stupor [Recovering/Resolving]
  - Tachycardia [Unknown]
  - Toxicity to various agents [Recovering/Resolving]
  - Confusional state [Recovering/Resolving]
  - Dysarthria [Recovering/Resolving]
  - Psychomotor hyperactivity [Recovering/Resolving]
  - Hallucination, visual [Recovering/Resolving]
  - Delirium [Recovering/Resolving]
